FAERS Safety Report 11574761 (Version 2)
Quarter: 2015Q4

REPORT INFORMATION
  Report Type: Spontaneous
  Country: US (occurrence: US)
  Receive Date: 20150916
  Receipt Date: 20151027
  Transmission Date: 20160304
  Serious: No
  Sender: FDA-Public Use
  Company Number: US-ELI_LILLY_AND_COMPANY-US200911002839

PATIENT
  Age: 47 Year
  Sex: Female

DRUGS (7)
  1. INDOMETHACIN. [Concomitant]
     Active Substance: INDOMETHACIN
     Indication: PAIN
     Dosage: 25 MG, 2/D
  2. FORTEO [Suspect]
     Active Substance: TERIPARATIDE
     Dosage: 20 UG, DAILY (1/D)
  3. ESTRACE [Concomitant]
     Active Substance: ESTRADIOL
     Dosage: 1 G, WEEKLY (1/W)
  4. FORTEO [Suspect]
     Active Substance: TERIPARATIDE
     Indication: OSTEOPOROSIS
     Dosage: 20 UG, DAILY (1/D)
  5. PRILOSEC [Concomitant]
     Active Substance: OMEPRAZOLE MAGNESIUM
  6. GABAPENTINE [Concomitant]
     Active Substance: GABAPENTIN
     Dosage: 400 MG, 3/D
  7. NASONEX [Concomitant]
     Active Substance: MOMETASONE FUROATE

REACTIONS (26)
  - Nail disorder [Unknown]
  - Bone loss [Unknown]
  - Cyst [Unknown]
  - Glossitis [Unknown]
  - Pain in extremity [Unknown]
  - Influenza like illness [Unknown]
  - Osteoarthritis [Unknown]
  - Tonsillar inflammation [Unknown]
  - Upper respiratory tract inflammation [Unknown]
  - Peripheral swelling [Unknown]
  - Joint crepitation [Unknown]
  - Back pain [Unknown]
  - Headache [Unknown]
  - Vision blurred [Unknown]
  - Blepharospasm [Unknown]
  - Lymphadenopathy [Unknown]
  - Pain in jaw [Not Recovered/Not Resolved]
  - Temporomandibular joint syndrome [Unknown]
  - Injection site bruising [Recovered/Resolved]
  - Muscle spasms [Unknown]
  - Exostosis [Unknown]
  - Osteitis [Unknown]
  - Stomatitis [Unknown]
  - Depressed mood [Unknown]
  - Joint swelling [Unknown]
  - Arthralgia [Unknown]

NARRATIVE: CASE EVENT DATE: 200910
